FAERS Safety Report 4444919-4 (Version None)
Quarter: 2004Q3

REPORT INFORMATION
  Report Type: 
  Country: None (occurrence: None)
  Receive Date: 20040903
  Receipt Date: 20040827
  Transmission Date: 20050211
  Serious: Yes (Other)
  Sender: FDA-Public Use
  Company Number: GRP04000167

PATIENT
  Age: 81 Year
  Sex: Female
  Weight: 50 kg

DRUGS (2)
  1. ACTONEL [Suspect]
     Indication: METASTASES TO BONE
     Dosage: 35 MG, 1/WEEK, ORAL
     Route: 048
  2. ZOMETA [Suspect]
     Indication: METASTASES TO BONE
     Dosage: 5 MG , 1/ MONTH, IV NOS
     Route: 042
     Dates: start: 20040401

REACTIONS (1)
  - OSTEONECROSIS [None]
